FAERS Safety Report 6737900-3 (Version None)
Quarter: 2010Q2

REPORT INFORMATION
  Report Type: 
  Country: None (occurrence: None)
  Receive Date: 20100524
  Receipt Date: 20100512
  Transmission Date: 20101027
  Serious: Yes (Other)
  Sender: FDA-Public Use
  Company Number: US-ROCHE-683132

PATIENT
  Sex: Male
  Weight: 79.4 kg

DRUGS (4)
  1. ACCUTANE [Suspect]
     Indication: ACNE
     Route: 048
     Dates: start: 20040628, end: 20041030
  2. ACCUTANE [Suspect]
     Route: 048
     Dates: start: 20041213, end: 20050113
  3. AMNESTEEM [Suspect]
     Indication: ACNE
     Route: 065
     Dates: start: 20041105, end: 20041205
  4. AMNESTEEM [Suspect]
     Route: 065
     Dates: start: 20050121, end: 20050221

REACTIONS (12)
  - ANAL FISSURE [None]
  - ARTHRALGIA [None]
  - BLOOD CHOLESTEROL INCREASED [None]
  - CHEILITIS [None]
  - COLITIS ULCERATIVE [None]
  - COLONIC STENOSIS [None]
  - CROHN'S DISEASE [None]
  - DRY SKIN [None]
  - INFLAMMATORY BOWEL DISEASE [None]
  - INTESTINAL HAEMORRHAGE [None]
  - INTESTINAL OBSTRUCTION [None]
  - RASH [None]
